FAERS Safety Report 7205924-8 (Version None)
Quarter: 2011Q1

REPORT INFORMATION
  Report Type: 
  Country: None (occurrence: None)
  Receive Date: 20110103
  Receipt Date: 20101227
  Transmission Date: 20110831
  Serious: Yes (Hospitalization)
  Sender: FDA-Public Use
  Company Number: TR-AMGEN-TURSP2010012281

PATIENT

DRUGS (1)
  1. ENBREL [Suspect]
     Indication: RHEUMATOID ARTHRITIS
     Dosage: 25 MG, 2X/WEEK
     Route: 058
     Dates: start: 20100622, end: 20100901

REACTIONS (5)
  - ASTHENIA [None]
  - URINARY TRACT INFECTION [None]
  - DIARRHOEA [None]
  - CONFUSIONAL STATE [None]
  - LUNG INFECTION [None]
